FAERS Safety Report 21077555 (Version 2)
Quarter: 2022Q3

REPORT INFORMATION
  Report Type: Spontaneous
  Country: JP (occurrence: JP)
  Receive Date: 20220713
  Receipt Date: 20220803
  Transmission Date: 20221027
  Serious: Yes (Other)
  Sender: FDA-Public Use
  Company Number: JP-SUNOVION-2022SMP004995

PATIENT
  Age: 24 Year
  Sex: Female

DRUGS (1)
  1. LATUDA [Suspect]
     Active Substance: LURASIDONE HYDROCHLORIDE
     Indication: Schizophrenia
     Dosage: 70 MG, QD
     Route: 048

REACTIONS (3)
  - Hallucination, auditory [Unknown]
  - Irritability [Recovering/Resolving]
  - Affect lability [Unknown]
